FAERS Safety Report 19760461 (Version 4)
Quarter: 2021Q3

REPORT INFORMATION
  Report Type: Spontaneous
  Country: DE (occurrence: DE)
  Receive Date: 20210830
  Receipt Date: 20210922
  Transmission Date: 20211014
  Serious: Yes (Hospitalization, Other)
  Sender: FDA-Public Use
  Company Number: NVSC2020DE269502

PATIENT
  Age: 42 Year
  Sex: Female
  Weight: 61 kg

DRUGS (28)
  1. OXYCODONE [Suspect]
     Active Substance: OXYCODONE
     Indication: PAIN
     Dosage: 10 MG (TOGETHER WITH NALOXON)
     Route: 065
  2. OXYCODONE [Suspect]
     Active Substance: OXYCODONE
     Dosage: 10 MG (0.5 DAY)/ (TOGETHER WITH NALOXON)
     Route: 065
  3. OXYCODONE [Suspect]
     Active Substance: OXYCODONE
     Dosage: 20 MG, QD (10 MG, BID)
     Route: 065
     Dates: end: 20210513
  4. PREGABALIN. [Concomitant]
     Active Substance: PREGABALIN
     Dosage: 300 MG, QD (100 MILLIGRAM, TID)
     Route: 065
  5. CORTISONE [Suspect]
     Active Substance: CORTISONE
     Dosage: UNK
     Route: 065
  6. SATIVEX [Suspect]
     Active Substance: NABIXIMOLS
     Indication: PRODUCT USED FOR UNKNOWN INDICATION
     Dosage: FREQ 2?2?2, 2 PUFFS EACH
     Route: 065
     Dates: start: 202007
  7. NALOXON [Suspect]
     Active Substance: NALOXONE HYDROCHLORIDE
     Indication: PRODUCT USED FOR UNKNOWN INDICATION
     Dosage: 5 MG (TOGETHER WITH OXYCODON)
     Route: 065
  8. JUBRELE [Concomitant]
     Active Substance: DESOGESTREL
     Indication: PRODUCT USED FOR UNKNOWN INDICATION
     Dosage: UNK
     Route: 065
  9. AMITRIPTYLIN [Concomitant]
     Active Substance: AMITRIPTYLINE
     Dosage: 25 MG, QD (0?0?1)
     Route: 065
  10. PANTOPRAZOLE [Suspect]
     Active Substance: PANTOPRAZOLE
     Indication: PRODUCT USED FOR UNKNOWN INDICATION
     Dosage: 20 MG
     Route: 065
  11. PREGABALIN. [Concomitant]
     Active Substance: PREGABALIN
     Dosage: 100 MG (FREQ:.16 D;2?2?2)
     Route: 065
  12. AMITRIPTYLIN [Concomitant]
     Active Substance: AMITRIPTYLINE
     Indication: PAIN
     Dosage: 25 MG, 1X/DAY
     Route: 048
     Dates: start: 2019
  13. MIRTAZAPIN [Concomitant]
     Active Substance: MIRTAZAPINE
     Indication: PRODUCT USED FOR UNKNOWN INDICATION
     Dosage: 7.5 MG
     Route: 065
  14. DULOXETINE. [Concomitant]
     Active Substance: DULOXETINE
     Dosage: 60 MG, QD (30 MILLIGRAM, BID)
     Route: 065
  15. CORTISONE [Suspect]
     Active Substance: CORTISONE
     Indication: PRODUCT USED FOR UNKNOWN INDICATION
     Dosage: 1000 MG
     Route: 065
  16. SATIVEX [Suspect]
     Active Substance: NABIXIMOLS
     Dosage: UNK (SPRAY, SUSPENSION)
     Route: 065
     Dates: start: 202007
  17. PREGABALIN. [Concomitant]
     Active Substance: PREGABALIN
     Dosage: 600 MG
     Route: 048
     Dates: start: 2019
  18. CORTISONE [Suspect]
     Active Substance: CORTISONE
     Dosage: 1000 MG, 3X/DAY
     Route: 065
  19. PARACETAMOL [Concomitant]
     Active Substance: ACETAMINOPHEN
     Dosage: UNK UNK, TID
     Route: 065
  20. AMITRIPTYLIN [Concomitant]
     Active Substance: AMITRIPTYLINE
     Dosage: 50 MG, QD (0?0?1)
     Route: 065
  21. DULOXETINE. [Concomitant]
     Active Substance: DULOXETINE
     Indication: PRODUCT USED FOR UNKNOWN INDICATION
     Dosage: 30 MG (1?0?1)
     Route: 065
  22. OXYCODONE [Suspect]
     Active Substance: OXYCODONE
     Dosage: 20 MG (0.5 DAY) (40 MG, QD)
     Route: 065
     Dates: start: 20210513
  23. PARACETAMOL [Concomitant]
     Active Substance: ACETAMINOPHEN
     Indication: PRODUCT USED FOR UNKNOWN INDICATION
     Dosage: UNK (UP TO 3 TIMES PER DAY)
     Route: 065
  24. PREGABALIN. [Concomitant]
     Active Substance: PREGABALIN
     Indication: PAIN
     Dosage: 200 MG
     Route: 065
     Dates: start: 2019
  25. PREGABALIN. [Concomitant]
     Active Substance: PREGABALIN
     Dosage: 200 MG (FREQ:.33 D)
     Route: 065
  26. MOVICOL [Concomitant]
     Active Substance: POLYETHYLENE GLYCOL 3350\POTASSIUM CHLORIDE\SODIUM BICARBONATE\SODIUM CHLORIDE
     Indication: PRODUCT USED FOR UNKNOWN INDICATION
     Dosage: UNK UNK, QD
     Route: 065
  27. NALOXON [Suspect]
     Active Substance: NALOXONE HYDROCHLORIDE
     Dosage: 10 MG, QD (5 MG BID)
     Route: 065
     Dates: end: 20210513
  28. PREGABALIN. [Concomitant]
     Active Substance: PREGABALIN
     Dosage: 600 MG
     Route: 065

REACTIONS (53)
  - Loss of consciousness [Unknown]
  - Chills [Recovered/Resolved]
  - Fungal skin infection [Recovered/Resolved]
  - Muscle spasticity [Recovered/Resolved]
  - Menstruation irregular [Unknown]
  - Coordination abnormal [Recovered/Resolved]
  - Pain [Recovering/Resolving]
  - Tongue movement disturbance [Recovering/Resolving]
  - Dyskinesia [Recovered/Resolved]
  - Arthralgia [Recovering/Resolving]
  - Joint range of motion decreased [Recovered/Resolved]
  - Muscular weakness [Recovered/Resolved]
  - Eye pain [Recovering/Resolving]
  - Odynophagia [Recovering/Resolving]
  - Intentional product use issue [Unknown]
  - Vaginal discharge [Unknown]
  - Pain in extremity [Not Recovered/Not Resolved]
  - Dysphagia [Recovered/Resolved]
  - Anal incontinence [Recovered/Resolved]
  - Muscular weakness [Recovered/Resolved]
  - Cognitive disorder [Recovered/Resolved]
  - Asthenia [Recovered/Resolved]
  - Fatigue [Recovered/Resolved]
  - Fatigue [Recovered/Resolved]
  - Head discomfort [Recovered/Resolved]
  - Alopecia [Recovering/Resolving]
  - Urinary incontinence [Recovered/Resolved]
  - Ocular discomfort [Recovering/Resolving]
  - Painful respiration [Recovered/Resolved]
  - Fatigue [Recovered/Resolved]
  - Photophobia [Recovered/Resolved]
  - Off label use [Unknown]
  - Fatigue [Recovered/Resolved]
  - Muscle spasms [Recovering/Resolving]
  - Musculoskeletal stiffness [Recovered/Resolved]
  - Hyperacusis [Recovered/Resolved]
  - Feeling cold [Recovered/Resolved]
  - Back pain [Recovering/Resolving]
  - Headache [Not Recovered/Not Resolved]
  - Muscular weakness [Recovering/Resolving]
  - Irritability [Recovering/Resolving]
  - Dyspnoea [Recovered/Resolved]
  - Sensory disturbance [Not Recovered/Not Resolved]
  - Tooth injury [Not Recovered/Not Resolved]
  - Constipation [Recovered/Resolved]
  - Vomiting [Recovered/Resolved]
  - Multiple sclerosis relapse [Recovered/Resolved]
  - Chills [Recovered/Resolved]
  - Mood swings [Recovered/Resolved]
  - Memory impairment [Unknown]
  - Speech disorder [Recovered/Resolved]
  - Dry skin [Not Recovered/Not Resolved]
  - Fall [Unknown]

NARRATIVE: CASE EVENT DATE: 20200206
